FAERS Safety Report 25661150 (Version 3)
Quarter: 2025Q4

REPORT INFORMATION
  Report Type: Spontaneous
  Country: JP (occurrence: JP)
  Receive Date: 20250808
  Receipt Date: 20251107
  Transmission Date: 20260118
  Serious: Yes (Death, Life-Threatening, Hospitalization, Other)
  Sender: BRISTOL-MYERS SQUIBB COMPANY
  Company Number: JP-ONO-2025JP014177

PATIENT
  Age: 8 Decade
  Sex: Male

DRUGS (3)
  1. OPDIVO [Suspect]
     Active Substance: NIVOLUMAB
     Indication: Squamous cell carcinoma of lung
     Dosage: UNK
     Route: 041
  2. CARBOPLATIN [Concomitant]
     Active Substance: CARBOPLATIN
     Indication: Squamous cell carcinoma of lung
     Dosage: UNK
  3. PACLITAXEL [Concomitant]
     Active Substance: PACLITAXEL
     Indication: Squamous cell carcinoma of lung
     Dosage: UNK

REACTIONS (12)
  - Cytomegalovirus enterocolitis [Fatal]
  - Pneumonia [Unknown]
  - Cytokine release syndrome [Unknown]
  - Cardiac arrest [Recovered/Resolved]
  - Disseminated intravascular coagulation [Unknown]
  - Interstitial lung disease [Unknown]
  - Acute kidney injury [Unknown]
  - Myocarditis [Unknown]
  - Feeding disorder [Unknown]
  - Movement disorder [Unknown]
  - Skin ulcer [Unknown]
  - Blood pressure decreased [Unknown]
